FAERS Safety Report 8299335 (Version 3)
Quarter: 2012Q4

REPORT INFORMATION
  Report Type: 
  Country: US (occurrence: US)
  Receive Date: 20111219
  Receipt Date: 20121106
  Transmission Date: 20130627
  Serious: Yes (Hospitalization, Other)
  Sender: FDA-Public Use
  Company Number: US-ROCHE-1022832

PATIENT
  Age: 38 Year
  Sex: Female
  Weight: 63.56 kg

DRUGS (1)
  1. ACCUTANE [Suspect]
     Indication: ACNE
     Route: 048
     Dates: start: 19970521, end: 199709

REACTIONS (5)
  - Irritable bowel syndrome [Unknown]
  - Colitis [Unknown]
  - Emotional distress [Unknown]
  - Dry skin [Unknown]
  - Lip dry [Unknown]
